FAERS Safety Report 8131057-2 (Version None)
Quarter: 2012Q1

REPORT INFORMATION
  Report Type: 
  Country: None (occurrence: None)
  Receive Date: 20120209
  Receipt Date: 20120209
  Transmission Date: 20120608
  Serious: Yes (Hospitalization)
  Sender: FDA-Public Use
  Company Number: None

PATIENT
  Sex: Female
  Weight: 143.64 kg

DRUGS (2)
  1. ERBITUX [Suspect]
     Dosage: 500 MG
  2. CISPLATIN [Suspect]
     Dosage: 60 MG

REACTIONS (8)
  - HYPOPHAGIA [None]
  - CANDIDIASIS [None]
  - NO THERAPEUTIC RESPONSE [None]
  - IMMOBILE [None]
  - DIARRHOEA [None]
  - MALNUTRITION [None]
  - ORAL HERPES [None]
  - HERPES SIMPLEX [None]
